FAERS Safety Report 21783222 (Version 1)
Quarter: 2022Q4

REPORT INFORMATION
  Report Type: Spontaneous
  Country: US (occurrence: US)
  Receive Date: 20221227
  Receipt Date: 20221227
  Transmission Date: 20230112
  Serious: No
  Sender: FDA-Public Use
  Company Number: US-SA-SAC20221223001455

PATIENT
  Sex: Female

DRUGS (11)
  1. DUPIXENT [Suspect]
     Active Substance: DUPILUMAB
     Indication: Dermatitis atopic
     Dosage: 300 MG, QOW
     Route: 058
     Dates: start: 20220616
  2. FLUOCINONIDE [Concomitant]
     Active Substance: FLUOCINONIDE
  3. METHYLPREDNISOLONE [Concomitant]
     Active Substance: METHYLPREDNISOLONE
  4. OMEPRAZOLE [Concomitant]
     Active Substance: OMEPRAZOLE
  5. OTEZLA [Concomitant]
     Active Substance: APREMILAST
  6. OXYBUTYNIN [Concomitant]
     Active Substance: OXYBUTYNIN
  7. PHENTERMINE [Concomitant]
     Active Substance: PHENTERMINE
  8. PREDNISOLONE [Concomitant]
     Active Substance: PREDNISOLONE
  9. TEMAZEPAM [Concomitant]
     Active Substance: TEMAZEPAM
  10. VITAMINS NOS [Concomitant]
     Active Substance: VITAMINS
  11. TRIAMCINOLONE [Concomitant]
     Active Substance: TRIAMCINOLONE

REACTIONS (1)
  - Injection site pain [Recovered/Resolved]
